FAERS Safety Report 25251511 (Version 2)
Quarter: 2025Q2

REPORT INFORMATION
  Report Type: Report from Study
  Country: US (occurrence: US)
  Receive Date: 20250429
  Receipt Date: 20250509
  Transmission Date: 20250717
  Serious: Yes (Hospitalization)
  Sender: ROCHE
  Company Number: US-ROCHE-10000252467

PATIENT
  Age: 2 Month
  Sex: Female
  Weight: 3.05 kg

DRUGS (1)
  1. EVRYSDI [Suspect]
     Active Substance: RISDIPLAM
     Indication: Spinal muscular atrophy
     Dosage: GIVE 0.7ML (0.525MG) BY MOUTH ONCE DAILY. DISCARD UNUSED MEDICATION BY THE EXPIRATION DATE ON BOTTLE
     Route: 048
     Dates: start: 20250104

REACTIONS (1)
  - Weight gain poor [Not Recovered/Not Resolved]

NARRATIVE: CASE EVENT DATE: 20250104
